FAERS Safety Report 11715064 (Version 1)
Quarter: 2015Q4

REPORT INFORMATION
  Report Type: Spontaneous
  Country: US (occurrence: US)
  Receive Date: 20151109
  Receipt Date: 20151109
  Transmission Date: 20160304
  Serious: No
  Sender: FDA-Public Use
  Company Number: US-BAUSCH-BL-2015-021692

PATIENT
  Age: 48 Year
  Sex: Female
  Weight: 90.8 kg

DRUGS (1)
  1. BONTRIL [Suspect]
     Active Substance: PHENDIMETRAZINE TARTRATE
     Indication: DECREASED APPETITE
     Route: 048
     Dates: start: 2015

REACTIONS (1)
  - Alopecia [Not Recovered/Not Resolved]

NARRATIVE: CASE EVENT DATE: 2015
